FAERS Safety Report 7144429-X (Version None)
Quarter: 2010Q4

REPORT INFORMATION
  Report Type: 
  Country: None (occurrence: None)
  Receive Date: 20101208
  Receipt Date: 20101119
  Transmission Date: 20110411
  Serious: Yes (Other)
  Sender: FDA-Public Use
  Company Number: GB-BAYER-201040027GPV

PATIENT

DRUGS (3)
  1. ILOPROST [Suspect]
     Indication: PULMONARY ARTERIAL HYPERTENSION
     Route: 055
  2. ILOPROST [Suspect]
     Route: 042
  3. BOSENTAN [Concomitant]

REACTIONS (1)
  - OFF LABEL USE [None]
